FAERS Safety Report 9461511 (Version 1)
Quarter: 2013Q3

REPORT INFORMATION
  Report Type: Spontaneous
  Country: US (occurrence: None)
  Receive Date: 20130814
  Receipt Date: 20130814
  Transmission Date: 20140515
  Serious: Yes (Other)
  Sender: FDA-Public Use
  Company Number: None

PATIENT
  Age: 56 Year
  Sex: Female
  Weight: 54.43 kg

DRUGS (1)
  1. BYDUREON [Suspect]
     Indication: BLOOD GLUCOSE INCREASED
     Dates: start: 20130513, end: 20130701

REACTIONS (6)
  - Injection site mass [None]
  - Pruritus [None]
  - Inflammation [None]
  - Discomfort [None]
  - Vision blurred [None]
  - Adverse reaction [None]
